FAERS Safety Report 4640306-4 (Version None)
Quarter: 2005Q2

REPORT INFORMATION
  Report Type: 
  Country: None (occurrence: None)
  Receive Date: 20050420
  Receipt Date: 20040616
  Transmission Date: 20051028
  Serious: No
  Sender: FDA-Public Use
  Company Number: US-GLAXOSMITHKLINE-A0514857A

PATIENT
  Sex: Male

DRUGS (8)
  1. ESKALITH [Suspect]
     Indication: DEPRESSION
     Dosage: 450MG PER DAY
     Route: 048
     Dates: start: 20040601
  2. VASERETIC [Concomitant]
  3. VASOTEC [Concomitant]
  4. POTASSIUM CHLORIDE [Concomitant]
  5. ALLOPURINOL [Concomitant]
  6. GLUCOPHAGE [Concomitant]
  7. PAVULON [Concomitant]
  8. VITAMINS [Concomitant]

REACTIONS (2)
  - PHARYNGOLARYNGEAL PAIN [None]
  - SWOLLEN TONGUE [None]
